FAERS Safety Report 7822013 (Version 8)
Quarter: 2012Q4

REPORT INFORMATION
  Report Type: 
  Country: US (occurrence: US)
  Receive Date: 20110222
  Receipt Date: 20121003
  Transmission Date: 20130627
  Serious: Yes (Hospitalization, Other)
  Sender: FDA-Public Use
  Company Number: US-ASTRAZENECA-2010SE46851

PATIENT
  Age: 53 Year
  Sex: Female
  Weight: 97.1 kg

DRUGS (52)
  1. SEROQUEL XR [Suspect]
     Indication: NERVOUSNESS
     Route: 048
     Dates: start: 2007
  2. SEROQUEL XR [Suspect]
     Indication: SLEEP DISORDER
     Route: 048
     Dates: start: 2007
  3. SEROQUEL XR [Suspect]
     Indication: DEPRESSION
     Route: 048
     Dates: start: 2007
  4. SEROQUEL XR [Suspect]
     Indication: NERVOUSNESS
     Route: 048
     Dates: start: 200808
  5. SEROQUEL XR [Suspect]
     Indication: SLEEP DISORDER
     Route: 048
     Dates: start: 200808
  6. SEROQUEL XR [Suspect]
     Indication: DEPRESSION
     Route: 048
     Dates: start: 200808
  7. SEROQUEL XR [Suspect]
     Indication: NERVOUSNESS
     Route: 048
  8. SEROQUEL XR [Suspect]
     Indication: SLEEP DISORDER
     Route: 048
  9. SEROQUEL XR [Suspect]
     Indication: DEPRESSION
     Route: 048
  10. NEXIUM [Suspect]
     Indication: GASTROOESOPHAGEAL REFLUX DISEASE
     Route: 048
     Dates: start: 2009
  11. NEXIUM [Suspect]
     Indication: DYSPEPSIA
     Route: 048
     Dates: start: 2009
  12. NEXIUM [Suspect]
     Indication: DYSPEPSIA
     Route: 048
     Dates: start: 2009
  13. NEXIUM [Suspect]
     Indication: GASTROOESOPHAGEAL REFLUX DISEASE
     Route: 048
     Dates: start: 2010
  14. NEXIUM [Suspect]
     Indication: DYSPEPSIA
     Route: 048
     Dates: start: 2010
  15. NEXIUM [Suspect]
     Indication: DYSPEPSIA
     Route: 048
     Dates: start: 2010
  16. NEXIUM [Suspect]
     Indication: GASTROOESOPHAGEAL REFLUX DISEASE
     Route: 048
  17. NEXIUM [Suspect]
     Indication: DYSPEPSIA
     Route: 048
  18. NEXIUM [Suspect]
     Indication: DYSPEPSIA
     Route: 048
  19. LISINOPRIL [Suspect]
     Indication: BLOOD PRESSURE
     Route: 048
  20. TOPROL XL [Suspect]
     Indication: HYPERTENSION
     Route: 048
     Dates: start: 2008
  21. TOPROL XL [Suspect]
     Indication: HYPERTENSION
     Route: 048
  22. CRESTOR [Suspect]
     Route: 048
  23. LASIX [Concomitant]
     Indication: DIURETIC THERAPY
     Route: 048
  24. LASIX [Concomitant]
     Indication: DIURETIC THERAPY
     Route: 048
     Dates: start: 2006
  25. KLONOPIN [Concomitant]
     Indication: ANXIETY
     Route: 048
     Dates: start: 1991
  26. KLONOPIN [Concomitant]
     Indication: DEPRESSION
     Route: 048
     Dates: start: 1991
  27. OXYCODONE [Concomitant]
  28. PROZAC [Concomitant]
     Indication: DEPRESSION
     Route: 048
     Dates: start: 2001
  29. ASA [Concomitant]
     Indication: CARDIAC DISORDER
  30. LABETALOL [Concomitant]
     Indication: BLOOD PRESSURE
     Dosage: 300 MG, THREE TIMES A DAY
  31. EMLODAPINE [Concomitant]
     Indication: BLOOD PRESSURE
     Route: 048
  32. LIVATALOL [Concomitant]
     Indication: BLOOD CHOLESTEROL ABNORMAL
  33. HYDROMET [Concomitant]
     Indication: COUGH
     Dosage: 1-2 TSP Q4-6H
  34. ZOFRAN [Concomitant]
     Indication: NAUSEA
  35. DOXYCYCLINE [Concomitant]
     Indication: ANTIBIOTIC THERAPY
     Dosage: 100 MG, TWO TIMES A DAY
  36. MIRAPEX [Concomitant]
     Indication: RESTLESS LEGS SYNDROME
     Route: 048
     Dates: start: 2009
  37. DONNATAL [Concomitant]
     Indication: IRRITABLE BOWEL SYNDROME
     Dosage: 16.2 MG THREE TIMES A DAY
  38. DECADRON [Concomitant]
  39. TRAZADONE [Concomitant]
     Indication: NERVOUSNESS
     Route: 048
     Dates: start: 201108
  40. VITAMIN D [Concomitant]
  41. TRAMADOL HCL [Concomitant]
  42. CYMBALTA [Concomitant]
     Indication: MIGRAINE
     Route: 048
     Dates: start: 201108
  43. CYMBALTA [Concomitant]
     Indication: DEPRESSION
     Route: 048
     Dates: start: 201108
  44. ALLEGRA [Concomitant]
     Indication: SEASONAL ALLERGY
     Route: 048
     Dates: start: 2010
  45. NORVASC [Concomitant]
     Indication: BLOOD PRESSURE
     Route: 048
     Dates: start: 2010
  46. PHENOBARBITAL [Concomitant]
     Indication: IRRITABLE BOWEL SYNDROME
     Dosage: 16.2 MG, THREE TIMES A DAY
     Route: 048
     Dates: start: 1991
  47. CLONIDINE [Concomitant]
     Indication: BLOOD PRESSURE
     Route: 048
     Dates: start: 2010
  48. TYLENOL EXTRA STRENGTH [Concomitant]
     Indication: HEADACHE
     Route: 048
     Dates: start: 1976
  49. ADRENALIN [Concomitant]
     Indication: MOTION SICKNESS
     Route: 048
  50. ADRENALIN [Concomitant]
     Indication: DIZZINESS
     Route: 048
  51. LOSARTAN [Concomitant]
     Indication: BLOOD PRESSURE
     Route: 048
  52. LOSARTAN [Concomitant]
     Indication: BLOOD PRESSURE
     Route: 048

REACTIONS (18)
  - Diarrhoea [Unknown]
  - Accelerated hypertension [Unknown]
  - Bronchitis [Recovered/Resolved]
  - Nausea [Unknown]
  - Chest pain [Unknown]
  - Cluster headache [Unknown]
  - Weight decreased [Unknown]
  - Transient ischaemic attack [Unknown]
  - Insomnia [Unknown]
  - Pain in extremity [Recovered/Resolved]
  - Blood pressure increased [Unknown]
  - Amnesia [Unknown]
  - Arthralgia [Unknown]
  - Nasopharyngitis [Unknown]
  - Gastroenteritis viral [Unknown]
  - Drug dose omission [Unknown]
  - Drug ineffective [Unknown]
  - Off label use [Unknown]
